FAERS Safety Report 4848921-X (Version None)
Quarter: 2005Q4

REPORT INFORMATION
  Report Type: 
  Country: None (occurrence: None)
  Receive Date: 20051208
  Receipt Date: 20050127
  Transmission Date: 20060501
  Serious: Yes (Hospitalization, Disabling, Other)
  Sender: FDA-Public Use
  Company Number: ES-MERCK-0502ESP00002

PATIENT
  Age: 51 Year
  Sex: Male

DRUGS (4)
  1. VIOXX [Suspect]
     Indication: OSTEOARTHRITIS
     Route: 048
     Dates: start: 20020101, end: 20020101
  2. VIOXX [Suspect]
     Route: 048
     Dates: start: 20010101
  3. NONSTEROIDAL ANTI-INFLAMMATORY DRUG (UNSPECIFIED) [Concomitant]
     Indication: OSTEOARTHRITIS
     Route: 065
  4. [THERAPY UNSPECIFIED] [Concomitant]
     Indication: OSTEOARTHRITIS
     Route: 065

REACTIONS (24)
  - ANXIETY [None]
  - ARRHYTHMIA [None]
  - ASTHENIA [None]
  - BLOOD CULTURE POSITIVE [None]
  - BLOOD SODIUM DECREASED [None]
  - CAROTID ARTERY DISSECTION [None]
  - CATARACT [None]
  - CEREBROVASCULAR SPASM [None]
  - EOSINOPHIL COUNT DECREASED [None]
  - HYPERSENSITIVITY [None]
  - HYPERTENSIVE CRISIS [None]
  - INTERVERTEBRAL DISC DEGENERATION [None]
  - INTRAOCULAR PRESSURE INCREASED [None]
  - LUNG DISORDER [None]
  - LYMPHOCYTE COUNT DECREASED [None]
  - MUSCULAR WEAKNESS [None]
  - NEUTROPHIL COUNT INCREASED [None]
  - PHLEBITIS [None]
  - PYREXIA [None]
  - SENSORY LOSS [None]
  - STAPHYLOCOCCAL INFECTION [None]
  - SUBARACHNOID HAEMORRHAGE [None]
  - VASOSPASM [None]
  - VISUAL ACUITY REDUCED [None]
